FAERS Safety Report 4776558-X (Version None)
Quarter: 2005Q3

REPORT INFORMATION
  Report Type: 
  Country: None (occurrence: None)
  Receive Date: 20050915
  Receipt Date: 20050906
  Transmission Date: 20060218
  Serious: Yes (Hospitalization, Disabling, Other)
  Sender: FDA-Public Use
  Company Number: 2005118095

PATIENT
  Age: 48 Year
  Sex: Female
  Weight: 93 kg

DRUGS (13)
  1. ALPRAZOLAM [Suspect]
     Indication: ILL-DEFINED DISORDER
     Dosage: 1.2 MG (0.4 MG, 3 IN 1 D), ORAL
     Route: 048
  2. HALCION [Concomitant]
  3. TOLEDOMIN                     (MILNACIPRAN HYDROCHLORIDE) [Concomitant]
  4. FLUNITRAZEPAM            (FLUNITRAZEPAM) [Concomitant]
  5. PAXIL [Concomitant]
  6. TASMOLIN             (BIPERIDEN) [Concomitant]
  7. AMOXAPINE [Concomitant]
  8. ANAFRANIL [Concomitant]
  9. DOGMATYL          (SULPIRIDE) [Concomitant]
  10. HIRNAMIN       (LEVOMEPROMAZINE) [Concomitant]
  11. NIZATIDINE [Concomitant]
  12. DEPAS                       (ETIZOLAM) [Concomitant]
  13. SEPAZON                     (CLOXAZOLAM) [Concomitant]

REACTIONS (6)
  - CARDIAC FAILURE CONGESTIVE [None]
  - CARDIO-RESPIRATORY ARREST [None]
  - CONGESTIVE CARDIOMYOPATHY [None]
  - DYSPNOEA EXERTIONAL [None]
  - PULMONARY EMBOLISM [None]
  - VENTRICULAR HYPERTROPHY [None]
